FAERS Safety Report 5460647-0 (Version None)
Quarter: 2007Q3

REPORT INFORMATION
  Report Type: 
  Country: None (occurrence: None)
  Receive Date: 20070918
  Receipt Date: 20070904
  Transmission Date: 20080115
  Serious: Yes (Life-Threatening, Hospitalization)
  Sender: FDA-Public Use
  Company Number: 6037723

PATIENT
  Age: 71 Year
  Sex: Female

DRUGS (7)
  1. METFORMIN HCL [Suspect]
     Indication: DIABETES MELLITUS
     Dates: start: 20060711
  2. BLINDED LIRAGLUTIDE (SOLUTION FOR INJECTION) [Suspect]
     Indication: DIABETES MELLITUS
     Dosage: 0,6 MG
     Route: 058
     Dates: start: 20060801
  3. ASPIRIN [Concomitant]
  4. NEUROBION N FORTE (PYRIDOXINE HYDROCHLORIDE, THIAMINE HYDROCHLORIDE, C [Concomitant]
  5. BETAMETHASONE [Concomitant]
  6. AMLODIPINE [Concomitant]
  7. NIFEDIPINE [Concomitant]

REACTIONS (2)
  - HAEMORRHAGE INTRACRANIAL [None]
  - HYPOGLYCAEMIA [None]
